FAERS Safety Report 25386843 (Version 1)
Quarter: 2025Q2

REPORT INFORMATION
  Report Type: Spontaneous
  Country: FR (occurrence: FR)
  Receive Date: 20250602
  Receipt Date: 20250602
  Transmission Date: 20250717
  Serious: Yes (Hospitalization)
  Sender: MYLAN
  Company Number: None

PATIENT
  Age: 77 Year
  Sex: Female
  Weight: 81 kg

DRUGS (36)
  1. EFFEXOR [Interacting]
     Active Substance: VENLAFAXINE HYDROCHLORIDE
     Indication: Depression
     Dosage: 150 MILLIGRAM, QD
  2. EFFEXOR [Interacting]
     Active Substance: VENLAFAXINE HYDROCHLORIDE
     Dosage: 150 MILLIGRAM, QD
     Route: 048
  3. EFFEXOR [Interacting]
     Active Substance: VENLAFAXINE HYDROCHLORIDE
     Dosage: 150 MILLIGRAM, QD
     Route: 048
  4. EFFEXOR [Interacting]
     Active Substance: VENLAFAXINE HYDROCHLORIDE
     Dosage: 150 MILLIGRAM, QD
  5. XARELTO [Interacting]
     Active Substance: RIVAROXABAN
     Indication: Pulmonary embolism
     Dosage: 20 MILLIGRAM, QD
     Dates: start: 20250310
  6. XARELTO [Interacting]
     Active Substance: RIVAROXABAN
     Dosage: 20 MILLIGRAM, QD
     Route: 048
     Dates: start: 20250310
  7. XARELTO [Interacting]
     Active Substance: RIVAROXABAN
     Dosage: 20 MILLIGRAM, QD
     Route: 048
     Dates: start: 20250310
  8. XARELTO [Interacting]
     Active Substance: RIVAROXABAN
     Dosage: 20 MILLIGRAM, QD
     Dates: start: 20250310
  9. ATORVASTATIN CALCIUM [Concomitant]
     Active Substance: ATORVASTATIN CALCIUM
  10. ATORVASTATIN CALCIUM [Concomitant]
     Active Substance: ATORVASTATIN CALCIUM
     Route: 065
  11. ATORVASTATIN CALCIUM [Concomitant]
     Active Substance: ATORVASTATIN CALCIUM
     Route: 065
  12. ATORVASTATIN CALCIUM [Concomitant]
     Active Substance: ATORVASTATIN CALCIUM
  13. PERINDOPRIL [Concomitant]
     Active Substance: PERINDOPRIL
  14. PERINDOPRIL [Concomitant]
     Active Substance: PERINDOPRIL
     Route: 065
  15. PERINDOPRIL [Concomitant]
     Active Substance: PERINDOPRIL
     Route: 065
  16. PERINDOPRIL [Concomitant]
     Active Substance: PERINDOPRIL
  17. INDAPAMIDE [Concomitant]
     Active Substance: INDAPAMIDE
  18. INDAPAMIDE [Concomitant]
     Active Substance: INDAPAMIDE
     Route: 065
  19. INDAPAMIDE [Concomitant]
     Active Substance: INDAPAMIDE
     Route: 065
  20. INDAPAMIDE [Concomitant]
     Active Substance: INDAPAMIDE
  21. METFORMIN HYDROCHLORIDE [Concomitant]
     Active Substance: METFORMIN HYDROCHLORIDE
  22. METFORMIN HYDROCHLORIDE [Concomitant]
     Active Substance: METFORMIN HYDROCHLORIDE
     Route: 065
  23. METFORMIN HYDROCHLORIDE [Concomitant]
     Active Substance: METFORMIN HYDROCHLORIDE
     Route: 065
  24. METFORMIN HYDROCHLORIDE [Concomitant]
     Active Substance: METFORMIN HYDROCHLORIDE
  25. LYRICA [Concomitant]
     Active Substance: PREGABALIN
  26. LYRICA [Concomitant]
     Active Substance: PREGABALIN
     Route: 065
  27. LYRICA [Concomitant]
     Active Substance: PREGABALIN
     Route: 065
  28. LYRICA [Concomitant]
     Active Substance: PREGABALIN
  29. OXAZEPAM [Concomitant]
     Active Substance: OXAZEPAM
  30. OXAZEPAM [Concomitant]
     Active Substance: OXAZEPAM
     Route: 065
  31. OXAZEPAM [Concomitant]
     Active Substance: OXAZEPAM
     Route: 065
  32. OXAZEPAM [Concomitant]
     Active Substance: OXAZEPAM
  33. ESOMEPRAZOLE [Concomitant]
     Active Substance: ESOMEPRAZOLE
  34. ESOMEPRAZOLE [Concomitant]
     Active Substance: ESOMEPRAZOLE
     Route: 065
  35. ESOMEPRAZOLE [Concomitant]
     Active Substance: ESOMEPRAZOLE
     Route: 065
  36. ESOMEPRAZOLE [Concomitant]
     Active Substance: ESOMEPRAZOLE

REACTIONS (2)
  - Blood loss anaemia [Recovering/Resolving]
  - Drug interaction [Unknown]

NARRATIVE: CASE EVENT DATE: 20250410
